FAERS Safety Report 18416772 (Version 6)
Quarter: 2021Q3

REPORT INFORMATION
  Report Type: Report from Study
  Country: None (occurrence: JP)
  Receive Date: 20201022
  Receipt Date: 20210928
  Transmission Date: 20211014
  Serious: Yes (Other)
  Sender: FDA-Public Use
  Company Number: JP-ABBVIE-20P-087-3598421-00

PATIENT
  Age: 43 Year
  Sex: Male
  Weight: 68.9 kg

DRUGS (7)
  1. LEUPRORELIN [Suspect]
     Active Substance: LEUPROLIDE ACETATE
     Indication: BULBOSPINAL MUSCULAR ATROPHY CONGENITAL
     Dosage: 11.25 MILLIGRAM, Q3MONTHS
     Route: 058
     Dates: start: 20190509
  2. PREDONINE [Concomitant]
     Active Substance: PREDNISOLONE
     Indication: PRODUCT USED FOR UNKNOWN INDICATION
     Dosage: 5 MILLIGRAM
     Route: 065
     Dates: start: 20190807, end: 20190809
  3. PREDONINE [Concomitant]
     Active Substance: PREDNISOLONE
     Dosage: 5 MILLIGRAM
     Route: 065
     Dates: start: 20191113, end: 20191114
  4. PREDONINE [Concomitant]
     Active Substance: PREDNISOLONE
     Dosage: 5 MILLIGRAM
     Route: 065
     Dates: start: 20200212, end: 20200213
  5. PREDONINE [Concomitant]
     Active Substance: PREDNISOLONE
     Dosage: 5 MILLIGRAM
     Route: 065
     Dates: start: 20201029, end: 20201029
  6. PREDONINE [Concomitant]
     Active Substance: PREDNISOLONE
     Dosage: 5 MILLIGRAM
     Route: 065
     Dates: start: 20210121, end: 20210121
  7. PREDONINE [Concomitant]
     Active Substance: PREDNISOLONE
     Dosage: 5 MILLIGRAM
     Route: 065
     Dates: start: 20210415, end: 20210415

REACTIONS (5)
  - Rash [Recovered/Resolved]
  - Chest pain [Recovered/Resolved]
  - Pneumonia [Recovered/Resolved]
  - Ankle fracture [Recovering/Resolving]
  - Fall [Recovering/Resolving]

NARRATIVE: CASE EVENT DATE: 20190511
